FAERS Safety Report 19792881 (Version 1)
Quarter: 2021Q3

REPORT INFORMATION
  Report Type: Spontaneous
  Country: FR (occurrence: FR)
  Receive Date: 20210906
  Receipt Date: 20210906
  Transmission Date: 20211014
  Serious: Yes (Other)
  Sender: FDA-Public Use
  Company Number: FR-ACCORD-237481

PATIENT
  Age: 61 Year
  Sex: Male
  Weight: 93 kg

DRUGS (3)
  1. KEYTRUDA [Suspect]
     Active Substance: PEMBROLIZUMAB
     Indication: LUNG ADENOCARCINOMA STAGE IV
     Dosage: C1
     Route: 041
     Dates: start: 20210706
  2. CISPLATIN. [Suspect]
     Active Substance: CISPLATIN
     Indication: LUNG ADENOCARCINOMA STAGE IV
     Dosage: C1
     Route: 041
     Dates: start: 20210706
  3. ALIMTA [Suspect]
     Active Substance: PEMETREXED DISODIUM
     Indication: LUNG ADENOCARCINOMA STAGE IV
     Dosage: C1
     Route: 041
     Dates: start: 20210706

REACTIONS (2)
  - Pruritus [Recovering/Resolving]
  - Rash maculo-papular [Recovering/Resolving]

NARRATIVE: CASE EVENT DATE: 20210723
